FAERS Safety Report 18764202 (Version 1)
Quarter: 2021Q1

REPORT INFORMATION
  Report Type: Other
  Country: US (occurrence: US)
  Receive Date: 20210120
  Receipt Date: 20210120
  Transmission Date: 20210419
  Serious: Yes (Hospitalization, Other)
  Sender: FDA-Public Use
  Company Number: US-ROCHE-2748593

PATIENT
  Age: 46 Year
  Sex: Male
  Weight: 113.5 kg

DRUGS (1)
  1. OCREVUS [Suspect]
     Active Substance: OCRELIZUMAB
     Indication: MULTIPLE SCLEROSIS
     Dosage: (PRESCRIBED AS INFUSE 300MG DAY 1 AND 15, THEN INFUSE 600MG EVERY 6 MONTHS)
     Route: 042
     Dates: start: 2020

REACTIONS (3)
  - COVID-19 [Recovering/Resolving]
  - Pneumonia viral [Unknown]
  - Multiple sclerosis relapse [Recovered/Resolved]

NARRATIVE: CASE EVENT DATE: 2020
